FAERS Safety Report 24882634 (Version 1)
Quarter: 2025Q1

REPORT INFORMATION
  Report Type: Report from Study
  Country: DE (occurrence: DE)
  Receive Date: 20250124
  Receipt Date: 20250124
  Transmission Date: 20250408
  Serious: No
  Sender: ROCHE
  Company Number: DE-ML39632-2414781-0

PATIENT
  Age: 68 Year
  Sex: Male
  Weight: 97 kg

DRUGS (16)
  1. OCREVUS [Suspect]
     Active Substance: OCRELIZUMAB
     Indication: Primary progressive multiple sclerosis
     Route: 042
     Dates: start: 20180522, end: 20180605
  2. OCREVUS [Suspect]
     Active Substance: OCRELIZUMAB
     Dosage: MOST RECENT DOSE RECEIVED ON 17-JUL-2024
     Route: 042
     Dates: start: 20181121
  3. Comirnaty Biontec Pfizer Impfung [Concomitant]
     Indication: COVID-19 immunisation
     Route: 030
     Dates: start: 20210407, end: 20210407
  4. Comirnaty Biontec Pfizer Impfung [Concomitant]
     Route: 030
     Dates: start: 20211109, end: 20211109
  5. Comirnaty Biontec Pfizer Impfung [Concomitant]
     Route: 030
     Dates: start: 20210317, end: 20210317
  6. ZOPICLONE [Concomitant]
     Active Substance: ZOPICLONE
     Indication: Sleep disorder
     Route: 048
     Dates: start: 2008
  7. DALFAMPRIDINE [Concomitant]
     Active Substance: DALFAMPRIDINE
     Route: 042
     Dates: start: 2015
  8. BIOTIN [Concomitant]
     Active Substance: BIOTIN
     Route: 048
     Dates: start: 2017
  9. ATORVASTATIN [Concomitant]
     Active Substance: ATORVASTATIN
     Route: 048
     Dates: start: 2011
  10. TELMISARTAN [Concomitant]
     Active Substance: TELMISARTAN
     Indication: Hypertension
     Route: 048
     Dates: start: 2015
  11. Moderna Impfung [Concomitant]
     Indication: COVID-19 immunisation
     Route: 030
     Dates: start: 20220607, end: 20220607
  12. TAMSULOSIN [Concomitant]
     Active Substance: TAMSULOSIN
     Indication: Bladder dysfunction
     Route: 048
     Dates: start: 201701, end: 20190219
  13. ALFUZOSIN [Concomitant]
     Active Substance: ALFUZOSIN
     Indication: Bladder dysfunction
     Route: 048
     Dates: start: 20190220
  14. BISOPROLOL FUMARATE [Concomitant]
     Active Substance: BISOPROLOL FUMARATE
     Indication: Hypertension
     Route: 048
     Dates: start: 2011
  15. DIMETHINDENE [Concomitant]
     Active Substance: DIMETHINDENE
     Route: 042
     Dates: start: 20180522
  16. METHYLPREDNISOLONE [Concomitant]
     Active Substance: METHYLPREDNISOLONE
     Route: 042
     Dates: start: 20180522

REACTIONS (1)
  - COVID-19 [Recovered/Resolved]

NARRATIVE: CASE EVENT DATE: 20241001
